FAERS Safety Report 12698676 (Version 1)
Quarter: 2016Q3

REPORT INFORMATION
  Report Type: Spontaneous
  Country: US (occurrence: US)
  Receive Date: 20160830
  Receipt Date: 20160830
  Transmission Date: 20161109
  Serious: No
  Sender: FDA-Public Use
  Company Number: US-PERRIGO-16US015712

PATIENT
  Age: 58 Year
  Sex: Female
  Weight: 86.17 kg

DRUGS (1)
  1. EVAMIST [Suspect]
     Active Substance: ESTRADIOL
     Indication: HOT FLUSH
     Dosage: 4.59 MG, QD
     Route: 062
     Dates: start: 201602

REACTIONS (3)
  - No adverse event [Unknown]
  - Contraindicated product administered [Unknown]
  - Incorrect dose administered [Unknown]

NARRATIVE: CASE EVENT DATE: 201602
